FAERS Safety Report 7994424-3 (Version None)
Quarter: 2011Q4

REPORT INFORMATION
  Report Type: 
  Country: None (occurrence: None)
  Receive Date: 20111217
  Receipt Date: 20111217
  Transmission Date: 20120403
  Serious: Yes (Hospitalization)
  Sender: FDA-Public Use
  Company Number: None

PATIENT
  Age: 64 Year
  Sex: Male
  Weight: 97.2 kg

DRUGS (1)
  1. TERBINAFINE HCL [Suspect]
     Indication: FUNGAL INFECTION
     Dosage: 250 MG EVERY DAY PO
     Route: 048
     Dates: start: 20110603, end: 20110612

REACTIONS (9)
  - PRURITUS [None]
  - CHILLS [None]
  - DYSPNOEA [None]
  - NAUSEA [None]
  - VOMITING [None]
  - LOSS OF CONSCIOUSNESS [None]
  - RASH ERYTHEMATOUS [None]
  - HAEMATEMESIS [None]
  - SYNCOPE [None]
